FAERS Safety Report 24799267 (Version 2)
Quarter: 2025Q1

REPORT INFORMATION
  Report Type: Spontaneous
  Country: IN (occurrence: IN)
  Receive Date: 20250102
  Receipt Date: 20250205
  Transmission Date: 20250408
  Serious: Yes (Death, Hospitalization)
  Sender: ROCHE
  Company Number: IN-ROCHE-10000151659

PATIENT
  Age: 63 Year
  Sex: Male

DRUGS (4)
  1. TECENTRIQ [Suspect]
     Active Substance: ATEZOLIZUMAB
     Indication: Metastatic renal cell carcinoma
     Route: 040
     Dates: start: 20241202
  2. TECENTRIQ [Suspect]
     Active Substance: ATEZOLIZUMAB
     Route: 040
     Dates: start: 20241202
  3. TECENTRIQ [Suspect]
     Active Substance: ATEZOLIZUMAB
     Route: 040
     Dates: start: 20241202
  4. DEPIN [Concomitant]

REACTIONS (6)
  - Off label use [Unknown]
  - Haemoglobin decreased [Unknown]
  - Blood creatinine increased [Unknown]
  - Aspiration pleural cavity [Unknown]
  - Hypertension [Unknown]
  - Cerebrovascular accident [Fatal]

NARRATIVE: CASE EVENT DATE: 20250119
